FAERS Safety Report 11868608 (Version 1)
Quarter: 2015Q4

REPORT INFORMATION
  Report Type: Spontaneous
  Country: US (occurrence: US)
  Receive Date: 20151225
  Receipt Date: 20151225
  Transmission Date: 20160305
  Serious: No
  Sender: FDA-Public Use
  Company Number: US-ASTRAZENECA-2015SF26904

PATIENT
  Age: 737 Month
  Sex: Female

DRUGS (3)
  1. COQ10 [Concomitant]
     Active Substance: UBIDECARENONE
     Route: 048
     Dates: start: 20140212
  2. ATORVASTATIN [Suspect]
     Active Substance: ATORVASTATIN
     Route: 065
     Dates: start: 20140117
  3. CRESTOR [Suspect]
     Active Substance: ROSUVASTATIN CALCIUM
     Indication: BLOOD CHOLESTEROL ABNORMAL
     Route: 048
     Dates: start: 201510

REACTIONS (8)
  - Posture abnormal [Unknown]
  - Pain in extremity [Recovering/Resolving]
  - Body height decreased [Unknown]
  - Arthropathy [Unknown]
  - Pain [Recovering/Resolving]
  - Muscular weakness [Recovering/Resolving]
  - Muscle spasms [Unknown]
  - Musculoskeletal pain [Recovering/Resolving]
